FAERS Safety Report 18478577 (Version 2)
Quarter: 2020Q4

REPORT INFORMATION
  Report Type: Spontaneous
  Country: PK (occurrence: PK)
  Receive Date: 20201109
  Receipt Date: 20201225
  Transmission Date: 20210114
  Serious: No
  Sender: FDA-Public Use
  Company Number: PK-LUPIN PHARMACEUTICALS INC.-2020-06921

PATIENT
  Sex: Female

DRUGS (1)
  1. MISOPROSTOL TABLET [Suspect]
     Active Substance: MISOPROSTOL
     Indication: LABOUR INDUCTION
     Dosage: 50 MICROGRAM UNK (100MICROG TABLET WAS CUT INTO EQUAL HALF USING TABLET CUTTER AND ONE HALF USED AT
     Route: 048

REACTIONS (2)
  - Off label use [Unknown]
  - Exposure during pregnancy [Unknown]
